FAERS Safety Report 12878605 (Version 2)
Quarter: 2016Q4

REPORT INFORMATION
  Report Type: Report from Study
  Country: US (occurrence: US)
  Receive Date: 20161024
  Receipt Date: 20161114
  Transmission Date: 20170207
  Serious: Yes (Congenital Anomaly, Other)
  Sender: FDA-Public Use
  Company Number: US-GILEAD-2016-0237834

PATIENT
  Age: 39 Week
  Sex: Male

DRUGS (1)
  1. EMTRICITABINE/RILPIVIRINE/TENOFOVIR DF [Suspect]
     Active Substance: EMTRICITABINE\RILPIVIRINE\TENOFOVIR DISOPROXIL FUMARATE
     Indication: HIV INFECTION
     Dosage: 1 DF, QD
     Route: 064

REACTIONS (8)
  - Foetal exposure during pregnancy [Recovered/Resolved]
  - Cytogenetic abnormality [Unknown]
  - Hypotonia [Unknown]
  - Micropenis [Unknown]
  - Talipes [Unknown]
  - Atrial septal defect [Unknown]
  - Gastrooesophageal reflux disease [Unknown]
  - Microtia [Unknown]

NARRATIVE: CASE EVENT DATE: 20151117
